FAERS Safety Report 8115380-3 (Version None)
Quarter: 2012Q1

REPORT INFORMATION
  Report Type: 
  Country: None (occurrence: None)
  Receive Date: 20120206
  Receipt Date: 20120206
  Transmission Date: 20120608
  Serious: Yes (Disabling)
  Sender: FDA-Public Use
  Company Number: None

PATIENT
  Age: 69 Year
  Sex: Male
  Weight: 78.471 kg

DRUGS (2)
  1. VALTREX [Concomitant]
     Indication: VIRAL INFECTION
     Dosage: 500 MG
     Route: 048
     Dates: start: 20040710, end: 20120101
  2. CIPROFLOXACIN [Suspect]
     Indication: BACTERAEMIA
     Dosage: 500 MG
     Route: 048
     Dates: start: 20040710, end: 20120101

REACTIONS (3)
  - PAIN [None]
  - ARTHROPATHY [None]
  - TENDON DISORDER [None]
